FAERS Safety Report 7134633-9 (Version None)
Quarter: 2010Q4

REPORT INFORMATION
  Report Type: 
  Country: None (occurrence: None)
  Receive Date: 20101203
  Receipt Date: 20101123
  Transmission Date: 20110411
  Serious: Yes (Hospitalization)
  Sender: FDA-Public Use
  Company Number: PHFR2010GB04366

PATIENT
  Sex: Male

DRUGS (2)
  1. VOLTAREN [Suspect]
     Indication: ANTIINFLAMMATORY THERAPY
     Dosage: 50 MG, TID
     Route: 048
     Dates: start: 20100907
  2. RIVAROXABAN [Suspect]
     Indication: KNEE OPERATION
     Dosage: 100 MG
     Route: 048
     Dates: start: 20100907

REACTIONS (1)
  - HAEMORRHAGE [None]
